FAERS Safety Report 8274873-9 (Version None)
Quarter: 2012Q2

REPORT INFORMATION
  Report Type: 
  Country: None (occurrence: None)
  Receive Date: 20120411
  Receipt Date: 20120402
  Transmission Date: 20120825
  Serious: Yes (Hospitalization, Other)
  Sender: FDA-Public Use
  Company Number: US-BAYER-2011-103560

PATIENT
  Age: 25 Year
  Sex: Female
  Weight: 90.703 kg

DRUGS (3)
  1. ZITHROMAX [Concomitant]
     Indication: SINUSITIS
     Dosage: UNK
     Route: 048
     Dates: start: 20081105
  2. MULTI-VITAMINS [Concomitant]
     Route: 048
  3. YAZ [Suspect]
     Indication: ACNE
     Dosage: UNK
     Route: 048
     Dates: start: 20080101

REACTIONS (6)
  - EMOTIONAL DISTRESS [None]
  - DEEP VEIN THROMBOSIS [None]
  - PAIN [None]
  - GALLBLADDER DISORDER [None]
  - INJURY [None]
  - PREGNANCY ON ORAL CONTRACEPTIVE [None]
